FAERS Safety Report 26062932 (Version 1)
Quarter: 2025Q4

REPORT INFORMATION
  Report Type: Spontaneous
  Country: US (occurrence: US)
  Receive Date: 20251119
  Receipt Date: 20251119
  Transmission Date: 20260118
  Serious: No
  Sender: CHURCH & DWIGHT
  Company Number: US-CHURCH AND DWIGHT CO., INC-2025-CDW-00917

PATIENT
  Age: 1 Year
  Sex: Male

DRUGS (1)
  1. GLYCERIN [Suspect]
     Active Substance: GLYCERIN
     Indication: Product used for unknown indication
     Dosage: 19-20 DOSAGE FORM
     Route: 002
     Dates: start: 20250426, end: 20250608

REACTIONS (1)
  - Oral fungal infection [Recovered/Resolved]

NARRATIVE: CASE EVENT DATE: 20250430
